FAERS Safety Report 12783107 (Version 1)
Quarter: 2016Q3

REPORT INFORMATION
  Report Type: Spontaneous
  Country: US (occurrence: US)
  Receive Date: 20160927
  Receipt Date: 20160927
  Transmission Date: 20161109
  Serious: Yes (Other)
  Sender: FDA-Public Use
  Company Number: US-BEH-2009020148

PATIENT
  Age: 60 Year
  Sex: Male
  Weight: 92.99 kg

DRUGS (10)
  1. GLUTATHIONE INJECTION [Concomitant]
     Dosage: SQ INJECTION ONCE WEEKLY
     Route: 058
  2. NEURONTIN [Concomitant]
     Active Substance: GABAPENTIN
     Dosage: 1 TAB 4 TIMES A DAY AS NEEDED
  3. VIVAGLOBIN [Suspect]
     Active Substance: HUMAN IMMUNOGLOBULIN G
     Indication: IMMUNODEFICIENCY COMMON VARIABLE
     Dosage: 4.8 G, 30 ML
     Route: 058
     Dates: start: 20090423
  4. FENTANYL TRANSDERMAL SYSTEM [Concomitant]
     Active Substance: FENTANYL
     Dosage: 100 MICRO GRAMS PER HOUR, 2 PATCHES EVERY 48 HOURS
     Route: 062
  5. SEREVENT DISKUS [Concomitant]
     Active Substance: SALMETEROL XINAFOATE
     Dosage: 1 PUFF BID
     Route: 055
  6. DILAUDID [Concomitant]
     Active Substance: HYDROMORPHONE HYDROCHLORIDE
     Dosage: 1 TAB AS NEEDED TAKEN 4 TIMES PER DAY
  7. BENICAR [Concomitant]
     Active Substance: OLMESARTAN MEDOXOMIL
     Indication: PAIN
     Dosage: 20 MG 1 TAB AS NEEDED FOR PAIN
  8. VALIUM [Concomitant]
     Active Substance: DIAZEPAM
     Dosage: 1 TAB AS NEEDED TAKEN 5 TIMES A DAY
  9. CYNACOBALAMIN [Concomitant]
     Dosage: 1000 MICRO GRAMS SQ ONCE PER WEEK
     Route: 058
  10. XOPENEX INHALER [Concomitant]
     Dosage: 2 PUFFS BID AS NEEDED
     Route: 055

REACTIONS (4)
  - Discomfort [Recovered/Resolved]
  - Serum sickness [Recovered/Resolved]
  - Arthralgia [Recovered/Resolved with Sequelae]
  - Arthralgia [Recovered/Resolved with Sequelae]

NARRATIVE: CASE EVENT DATE: 20090425
